FAERS Safety Report 7929816-1 (Version None)
Quarter: 2011Q4

REPORT INFORMATION
  Report Type: 
  Country: None (occurrence: None)
  Receive Date: 20111121
  Receipt Date: 20111110
  Transmission Date: 20120403
  Serious: Yes (Hospitalization)
  Sender: FDA-Public Use
  Company Number: FR-BRISTOL-MYERS SQUIBB COMPANY-16125627

PATIENT
  Age: 48 Year
  Sex: Male
  Weight: 83 kg

DRUGS (4)
  1. COMBIVIR [Suspect]
     Indication: HIV INFECTION
     Dates: start: 20060313, end: 20110330
  2. INTELENCE [Suspect]
     Indication: HIV INFECTION
     Dates: start: 20081013
  3. RITONAVIR [Suspect]
     Indication: HIV INFECTION
  4. REYATAZ [Suspect]
     Indication: HIV INFECTION
     Dates: start: 20060313, end: 20081013

REACTIONS (4)
  - CHOLECYSTITIS [None]
  - CHOLELITHIASIS [None]
  - CHOLANGITIS [None]
  - NEPHROLITHIASIS [None]
